FAERS Safety Report 8336004-6 (Version None)
Quarter: 2012Q2

REPORT INFORMATION
  Report Type: 
  Country: None (occurrence: None)
  Receive Date: 20120501
  Receipt Date: 20120501
  Transmission Date: 20120825
  Serious: Yes (Hospitalization, Other)
  Sender: FDA-Public Use
  Company Number: None

PATIENT
  Age: 68 Year
  Sex: Male
  Weight: 95.1 kg

DRUGS (1)
  1. SULFAMETHOXAZOLE AND TRIMETHOPRIM [Suspect]
     Indication: WRONG DRUG ADMINISTERED
     Dosage: 1 TAB ONCE PO
     Route: 048
     Dates: start: 20120415, end: 20120415

REACTIONS (10)
  - RASH [None]
  - WRONG DRUG ADMINISTERED [None]
  - PHARYNGEAL ULCERATION [None]
  - PENILE ULCERATION [None]
  - STOMATITIS [None]
  - BLISTER [None]
  - EXPOSURE TO MOULD [None]
  - ERYTHEMA MULTIFORME [None]
  - TOXIC EPIDERMAL NECROLYSIS [None]
  - ANGIOEDEMA [None]
